FAERS Safety Report 9723285 (Version 1)
Quarter: 2013Q4

REPORT INFORMATION
  Report Type: Spontaneous
  Country: TR (occurrence: TR)
  Receive Date: 20131202
  Receipt Date: 20131202
  Transmission Date: 20140711
  Serious: Yes (Death)
  Sender: FDA-Public Use
  Company Number: TR-BAYER-2013-143720

PATIENT
  Age: 88 Year
  Sex: Male
  Weight: 74.83 kg

DRUGS (2)
  1. CORASPIN [Suspect]
     Dosage: 100 MG, QD
  2. BELOC [Suspect]
     Dosage: 50 MG, UNK

REACTIONS (1)
  - Death [Fatal]
